FAERS Safety Report 9367156 (Version 1)
Quarter: 2013Q2

REPORT INFORMATION
  Report Type: Spontaneous
  Country: US (occurrence: US)
  Receive Date: 20130625
  Receipt Date: 20130625
  Transmission Date: 20140414
  Serious: No
  Sender: FDA-Public Use
  Company Number: US-ASTELLAS-2012US004876

PATIENT
  Age: 84 Year
  Sex: Male
  Weight: 100 kg

DRUGS (12)
  1. VESICARE [Suspect]
     Indication: POLLAKIURIA
     Dosage: 10 MG, UID/QD
     Route: 048
     Dates: end: 20120514
  2. VESICARE [Suspect]
     Dosage: 10 MG, QOD
     Route: 048
     Dates: start: 20120514, end: 20120521
  3. VESICARE [Suspect]
     Dosage: 5 MG, UNKNOWN/D
     Route: 048
  4. TOPROL [Concomitant]
     Indication: CARDIAC DISORDER
     Dosage: UNK
     Route: 065
  5. ECOTRIN [Concomitant]
     Indication: CARDIAC DISORDER
     Dosage: UNK
     Route: 065
  6. LIPITOR [Concomitant]
     Indication: BLOOD PRESSURE
     Dosage: UNK
     Route: 065
  7. LISINOPRIL [Concomitant]
     Indication: BLOOD PRESSURE
     Dosage: UNK
     Route: 065
  8. TAMSULOSIN [Concomitant]
     Indication: URINARY TRACT DISORDER
     Dosage: UNK
     Route: 065
  9. ACTONEL [Concomitant]
     Indication: BONE DISORDER
     Dosage: UNK
     Route: 065
  10. GLUCOSAMINE [Concomitant]
     Indication: BONE DISORDER
     Dosage: UNK
     Route: 065
  11. MAGNESIUM [Concomitant]
     Indication: PRODUCT USED FOR UNKNOWN INDICATION
     Dosage: UNK
     Route: 065
  12. MULTIVITAMIN [Concomitant]
     Indication: PRODUCT USED FOR UNKNOWN INDICATION
     Dosage: UNK
     Route: 065

REACTIONS (3)
  - Inappropriate schedule of drug administration [Unknown]
  - Constipation [Recovered/Resolved]
  - Dry mouth [Recovered/Resolved]
